FAERS Safety Report 15746554 (Version 1)
Quarter: 2018Q4

REPORT INFORMATION
  Report Type: Report from Study
  Country: DE (occurrence: DE)
  Receive Date: 20181220
  Receipt Date: 20181220
  Transmission Date: 20190205
  Serious: Yes (Other)
  Sender: FDA-Public Use
  Company Number: DE-CELGENEUS-DEU-20181206178

PATIENT
  Age: 41 Year
  Sex: Male

DRUGS (4)
  1. ABRAXANE [Suspect]
     Active Substance: PACLITAXEL
     Indication: PANCREATIC CARCINOMA
     Route: 041
     Dates: start: 201705
  2. GEMCITABINE [Concomitant]
     Active Substance: GEMCITABINE\GEMCITABINE HYDROCHLORIDE
     Indication: PANCREATIC CARCINOMA
     Route: 065
     Dates: start: 201705
  3. GEMCITABINE [Concomitant]
     Active Substance: GEMCITABINE\GEMCITABINE HYDROCHLORIDE
     Dosage: DOSE REDUCED
     Route: 065
     Dates: end: 201809
  4. ABRAXANE [Suspect]
     Active Substance: PACLITAXEL
     Dosage: REDUCED DOSE (75 PERCENT)
     Route: 050
     Dates: end: 201809

REACTIONS (7)
  - Pancreatic carcinoma [Unknown]
  - Livedo reticularis [Unknown]
  - Weight decreased [Unknown]
  - Mucosal inflammation [Unknown]
  - Leukopenia [Unknown]
  - Polyneuropathy [Unknown]
  - Thrombocytopenia [Unknown]
